FAERS Safety Report 23807951 (Version 3)
Quarter: 2024Q2

REPORT INFORMATION
  Report Type: Spontaneous
  Country: IT (occurrence: IT)
  Receive Date: 20240502
  Receipt Date: 20240508
  Transmission Date: 20240715
  Serious: Yes (Other)
  Sender: FDA-Public Use
  Company Number: IT-AMGEN-ITASP2024080824

PATIENT
  Age: 83 Year
  Sex: Male
  Weight: 78 kg

DRUGS (9)
  1. IRINOTECAN HYDROCHLORIDE [Suspect]
     Active Substance: IRINOTECAN HYDROCHLORIDE
     Indication: Colorectal cancer metastatic
     Dosage: ADMINISTERED FOR 12 CYCLES/150MG/MQ EVERY 14 DAYS
     Route: 042
     Dates: start: 201907, end: 201912
  2. LEVOLEUCOVORIN CALCIUM [Suspect]
     Active Substance: LEVOLEUCOVORIN CALCIUM
     Indication: Colorectal cancer metastatic
     Dosage: 100MG/MQ EVERY 14 DAYS/AT DOSES REDUCED BY 20% FOR 9 CYCLES
     Route: 042
     Dates: start: 201806, end: 201812
  3. OXALIPLATIN [Suspect]
     Active Substance: OXALIPLATIN
     Indication: Colorectal cancer metastatic
     Dosage: 100MG/MQ EVERY 14 DAYS/AT DOSES REDUCED BY 20% FOR 9 CYCLES
     Route: 042
     Dates: start: 201806, end: 201812
  4. PANITUMUMAB [Suspect]
     Active Substance: PANITUMUMAB
     Indication: Colorectal cancer metastatic
     Dosage: 12 CYCLES/6MG/KG EVERY 14 DAYS.
     Route: 042
     Dates: start: 201806, end: 201812
  5. PANITUMUMAB [Suspect]
     Active Substance: PANITUMUMAB
     Dosage: UNK
     Route: 065
     Dates: start: 202007, end: 202311
  6. FLUOROURACIL [Suspect]
     Active Substance: FLUOROURACIL
     Indication: Colorectal cancer metastatic
     Dosage: CI 2400MG EVERY 14 DAYS/AT DOSES REDUCED BY 20% FOR 9 CYCLES
     Route: 042
     Dates: start: 201806, end: 201812
  7. FLUOROURACIL [Suspect]
     Active Substance: FLUOROURACIL
     Dosage: UNK
     Route: 065
     Dates: start: 202007, end: 202311
  8. TRIFLURIDINE [Concomitant]
     Active Substance: TRIFLURIDINE
     Indication: Colorectal cancer metastatic
     Dosage: UNK
     Route: 065
     Dates: start: 202003, end: 202006
  9. TIPIRACIL [Concomitant]
     Active Substance: TIPIRACIL
     Indication: Colorectal cancer metastatic
     Dosage: UNK
     Route: 065
     Dates: start: 202003, end: 202006

REACTIONS (4)
  - Rash maculo-papular [Recovered/Resolved]
  - Haematotoxicity [Recovered/Resolved]
  - Conjunctivitis [Recovered/Resolved]
  - Paronychia [Recovered/Resolved]
